FAERS Safety Report 14055469 (Version 1)
Quarter: 2017Q4

REPORT INFORMATION
  Report Type: Spontaneous
  Country: US (occurrence: US)
  Receive Date: 20171006
  Receipt Date: 20171006
  Transmission Date: 20180321
  Serious: No
  Sender: FDA-Public Use
  Company Number: US-JNJFOC-20170804536

PATIENT
  Age: 7 Decade
  Sex: Female

DRUGS (7)
  1. L GLUTAMINE [Concomitant]
     Active Substance: GLUTAMINE
     Indication: ROUTINE HEALTH MAINTENANCE
     Route: 065
  2. CALCIUM W/MAGNESIUM/ZINC [Concomitant]
     Indication: MUSCLE SPASMS
     Route: 065
  3. MENS ROGAINE [Suspect]
     Active Substance: MINOXIDIL
     Indication: ALOPECIA
     Dosage: 2 SQUIRTS WITH THE DROPPER
     Route: 061
  4. NIZORAL [Concomitant]
     Active Substance: KETOCONAZOLE
     Indication: PRURITUS
     Dosage: TABLESPOON
     Route: 061
  5. MENS ROGAINE [Suspect]
     Active Substance: MINOXIDIL
     Route: 061
  6. MULTIVITAMINS [Concomitant]
     Active Substance: VITAMINS
     Indication: ROUTINE HEALTH MAINTENANCE
     Route: 065
  7. COENZYME Q10 [Concomitant]
     Active Substance: UBIDECARENONE
     Indication: ROUTINE HEALTH MAINTENANCE
     Dosage: YEARS
     Route: 065

REACTIONS (4)
  - Product use issue [Not Recovered/Not Resolved]
  - Pruritus [Not Recovered/Not Resolved]
  - Off label use [Not Recovered/Not Resolved]
  - Contraindicated product administered [Not Recovered/Not Resolved]
